FAERS Safety Report 6855984-9 (Version None)
Quarter: 2010Q2

REPORT INFORMATION
  Report Type: 
  Country: None (occurrence: None)
  Receive Date: 20100629
  Receipt Date: 20100520
  Transmission Date: 20101027
  Serious: No
  Sender: FDA-Public Use
  Company Number: US-WYE-H15220510

PATIENT
  Sex: Female

DRUGS (1)
  1. PRISTIQ [Suspect]
     Dosage: 50 MG THIS MORNING
     Dates: start: 20100518, end: 20100518

REACTIONS (2)
  - FEELING ABNORMAL [None]
  - TREMOR [None]
